FAERS Safety Report 19626124 (Version 1)
Quarter: 2021Q3

REPORT INFORMATION
  Report Type: Spontaneous
  Country: HR (occurrence: HR)
  Receive Date: 20210729
  Receipt Date: 20210729
  Transmission Date: 20211014
  Serious: Yes (Other)
  Sender: FDA-Public Use
  Company Number: HR-TEVA-2021-HR-1936633

PATIENT
  Age: 50 Year
  Sex: Female
  Weight: 110 kg

DRUGS (4)
  1. EUTHYROX [Concomitant]
     Active Substance: LEVOTHYROXINE SODIUM
     Indication: MULTIPLE SCLEROSIS
     Dosage: 100 MCG
     Route: 048
     Dates: start: 2018
  2. OLEOVIT D3 [Concomitant]
     Active Substance: CHOLECALCIFEROL
     Indication: MULTIPLE SCLEROSIS
     Dosage: 4 DROPS, 4 GTT
     Route: 048
     Dates: start: 2018
  3. COPAXONE [Suspect]
     Active Substance: GLATIRAMER ACETATE
     Indication: MULTIPLE SCLEROSIS
     Dosage: EVERY 3 DAYS
     Route: 058
     Dates: start: 20210120, end: 20210619
  4. ANDOL [Concomitant]
     Active Substance: ASPIRIN
     Indication: DISEASE RISK FACTOR
     Dosage: 100 MG
     Route: 048
     Dates: start: 2020

REACTIONS (5)
  - Nausea [Recovered/Resolved]
  - Chest discomfort [Recovered/Resolved]
  - Hypersensitivity [Recovered/Resolved]
  - Rash [Recovered/Resolved]
  - Tachycardia [Recovered/Resolved]

NARRATIVE: CASE EVENT DATE: 20210619
